FAERS Safety Report 7638170-4 (Version None)
Quarter: 2011Q3

REPORT INFORMATION
  Report Type: 
  Country: None (occurrence: None)
  Receive Date: 20110727
  Receipt Date: 20110718
  Transmission Date: 20111222
  Serious: Yes (Other)
  Sender: FDA-Public Use
  Company Number: US-JNJFOC-20110505117

PATIENT
  Sex: Female

DRUGS (7)
  1. NORVASC [Concomitant]
     Indication: HYPERTENSION
     Route: 065
  2. LEVAQUIN [Suspect]
     Indication: EAR INFECTION
     Route: 048
     Dates: start: 20081101
  3. LEVAQUIN [Suspect]
     Indication: BACTERIAL INFECTION
     Route: 048
     Dates: start: 20081101
  4. STEROIDS NOS [Suspect]
     Indication: PRODUCT USED FOR UNKNOWN INDICATION
  5. ENALAPRIL MALEATE [Concomitant]
     Indication: HYPERTENSION
     Route: 065
  6. TOPROL-XL [Concomitant]
     Indication: HYPERTENSION
     Route: 065
  7. ESTROPIPATE [Concomitant]
     Indication: HORMONE THERAPY
     Route: 065

REACTIONS (2)
  - TENDON RUPTURE [None]
  - ROTATOR CUFF SYNDROME [None]
